FAERS Safety Report 17502678 (Version 1)
Quarter: 2020Q1

REPORT INFORMATION
  Report Type: Spontaneous
  Country: US (occurrence: US)
  Receive Date: 20200305
  Receipt Date: 20200305
  Transmission Date: 20200409
  Serious: Yes (Death, Hospitalization)
  Sender: FDA-Public Use
  Company Number: US-TEVA-2020-US-1193392

PATIENT
  Age: 4 Year
  Sex: Male

DRUGS (12)
  1. SODIUM BICARBONATE. [Suspect]
     Active Substance: SODIUM BICARBONATE
     Route: 065
  2. DEXTROSE. [Suspect]
     Active Substance: DEXTROSE
     Route: 065
  3. ROPIVACAINE. [Suspect]
     Active Substance: ROPIVACAINE HYDROCHLORIDE
     Indication: PROCEDURAL PAIN
     Route: 065
  4. MAGNESIUM [Suspect]
     Active Substance: MAGNESIUM
     Route: 065
  5. PROPOFOL. [Concomitant]
     Active Substance: PROPOFOL
     Route: 065
  6. FAT EMULSION NOS [Suspect]
     Active Substance: EGG PHOSPHOLIPIDS\SAFFLOWER OIL\SOYBEAN OIL
     Indication: ARRHYTHMIA
     Route: 042
  7. PANTOPRAZOLE [Concomitant]
     Active Substance: PANTOPRAZOLE
     Route: 065
  8. FENTANYL. [Concomitant]
     Active Substance: FENTANYL
     Route: 065
  9. CEFTRIAXONE. [Concomitant]
     Active Substance: CEFTRIAXONE
     Route: 065
  10. EPINEPHRINE. [Suspect]
     Active Substance: EPINEPHRINE
     Route: 065
  11. INSULIN [Suspect]
     Active Substance: INSULIN NOS
     Indication: HYPERKALAEMIA
     Route: 065
  12. AMIODARONE [Suspect]
     Active Substance: AMIODARONE
     Route: 065

REACTIONS (8)
  - Ejection fraction decreased [Fatal]
  - Hyperkalaemia [Fatal]
  - Drug ineffective [Unknown]
  - Arrhythmia [Fatal]
  - Cardiac arrest [Fatal]
  - Ventricular extrasystoles [Fatal]
  - Tachycardia [Fatal]
  - Ventricular fibrillation [Fatal]
